FAERS Safety Report 5356727-0 (Version None)
Quarter: 2007Q2

REPORT INFORMATION
  Report Type: 
  Country: None (occurrence: None)
  Receive Date: 20070530
  Receipt Date: 20061110
  Transmission Date: 20071010
  Serious: Yes (Other)
  Sender: FDA-Public Use
  Company Number: US200608003965

PATIENT
  Age: 55 Year
  Sex: Female
  Weight: 98.4 kg

DRUGS (5)
  1. ZYPREXA [Suspect]
     Indication: DEPRESSION
     Dosage: 20 MG
  2. DEPAKOTE [Concomitant]
  3. BUPROPION HCL [Concomitant]
  4. CHLOROTHIAZIDE [Concomitant]
  5. PREDNISONE TAB [Concomitant]

REACTIONS (2)
  - HYPOGLYCAEMIA [None]
  - TRANSIENT ISCHAEMIC ATTACK [None]
